FAERS Safety Report 4922585-9 (Version None)
Quarter: 2006Q1

REPORT INFORMATION
  Report Type: 
  Country: None (occurrence: None)
  Receive Date: 20060224
  Receipt Date: 20060201
  Transmission Date: 20060701
  Serious: Yes (Hospitalization)
  Sender: FDA-Public Use
  Company Number: JP-JNJFOC-20060104122

PATIENT
  Age: 22 Year
  Sex: Male

DRUGS (9)
  1. PAROXETINE HYDROCHLORIDE [Suspect]
     Route: 048
     Dates: start: 20060118, end: 20060118
  2. RISPERDAL [Suspect]
     Route: 048
     Dates: start: 20060118, end: 20060118
  3. ETIZOLAM [Suspect]
     Route: 048
     Dates: start: 20060118, end: 20060118
  4. FLUNITRAZEPAM [Suspect]
     Route: 048
     Dates: start: 20060118, end: 20060118
  5. LORAZEPAM [Suspect]
     Route: 048
     Dates: start: 20060118, end: 20060118
  6. CLOXAZOLAM [Suspect]
     Route: 048
     Dates: start: 20060118, end: 20060118
  7. NITRAZEPAM [Suspect]
     Route: 048
     Dates: start: 20060118, end: 20060118
  8. BIPERIDEN HYDROCHLORIDE TAB [Suspect]
     Route: 048
     Dates: start: 20060118, end: 20060118
  9. QUAZEPAM [Suspect]
     Route: 048
     Dates: start: 20060118, end: 20060118

REACTIONS (3)
  - COMA [None]
  - OVERDOSE [None]
  - SUICIDE ATTEMPT [None]
